FAERS Safety Report 5940718-2 (Version None)
Quarter: 2008Q4

REPORT INFORMATION
  Report Type: 
  Country: None (occurrence: None)
  Receive Date: 20081103
  Receipt Date: 20081103
  Transmission Date: 20090506
  Serious: Yes (Hospitalization)
  Sender: FDA-Public Use
  Company Number: None

PATIENT
  Age: 86 Year
  Sex: Male

DRUGS (3)
  1. FAMOTIDINE [Suspect]
     Indication: GASTROINTESTINAL DISORDER
     Dosage: 20 MG BID IV
     Route: 042
     Dates: start: 20080418, end: 20080430
  2. FAMOTIDINE [Suspect]
     Indication: PROPHYLAXIS
     Dosage: 20 MG BID IV
     Route: 042
     Dates: start: 20080418, end: 20080430
  3. PIPERACILLIN SODIUM AND TAZOBACTAM SODIUM [Suspect]
     Indication: PNEUMONIA
     Dosage: 2.25 GM QID IV
     Route: 042

REACTIONS (1)
  - THROMBOCYTOPENIA [None]
